FAERS Safety Report 4606187-X (Version None)
Quarter: 2005Q2

REPORT INFORMATION
  Report Type: 
  Country: None (occurrence: None)
  Receive Date: 20050214
  Receipt Date: 20041110
  Transmission Date: 20051028
  Serious: No
  Sender: FDA-Public Use
  Company Number: USA041183810

PATIENT
  Age: 72 Year
  Sex: Male
  Weight: 123 kg

DRUGS (15)
  1. CIALIS [Suspect]
     Indication: ERECTILE DYSFUNCTION
     Dosage: 20 MG
  2. PLENDIL [Concomitant]
  3. TRIAMTERENE AND HYDROCHLOROTHIAZIDE [Concomitant]
  4. ZETIA [Concomitant]
  5. LASIX [Concomitant]
  6. SPIRONOLACTONE W/ HYDROCHLOROTHIAZIDE [Concomitant]
  7. CRESTOR [Concomitant]
  8. ALLOPURINOL [Concomitant]
  9. MONOPRIL [Concomitant]
  10. AMARYL [Concomitant]
  11. ELAVIL [Concomitant]
  12. ACETAMINOPHEN/DIPHENHYDRAMINE [Concomitant]
  13. SAW PALMETTO [Concomitant]
  14. OMEGA 3 (FISH OIL) [Concomitant]
  15. ASPIRIN [Concomitant]

REACTIONS (2)
  - DRUG INEFFECTIVE [None]
  - THERAPEUTIC RESPONSE DECREASED [None]
